FAERS Safety Report 24454639 (Version 2)
Quarter: 2024Q4

REPORT INFORMATION
  Report Type: Spontaneous
  Country: US (occurrence: US)
  Receive Date: 20241017
  Receipt Date: 20241018
  Transmission Date: 20250115
  Serious: No
  Sender: ROCHE
  Company Number: US-ROCHE-3466679

PATIENT
  Sex: Female

DRUGS (10)
  1. RITUXIMAB [Suspect]
     Active Substance: RITUXIMAB
     Indication: Chronic lymphocytic leukaemia
     Dosage: RECEIVED 6 CYCLES. IT WAS STOPPED IN 2021 AND SHIFTED TO CAR-T CELL THERAPY.
     Route: 065
     Dates: end: 2021
  2. OBINUTUZUMAB [Suspect]
     Active Substance: OBINUTUZUMAB
     Indication: Chronic lymphocytic leukaemia
     Dosage: 2 CYCLES
     Route: 065
     Dates: start: 2020
  3. VENETOCLAX [Suspect]
     Active Substance: VENETOCLAX
     Indication: Chronic lymphocytic leukaemia
     Route: 065
     Dates: start: 2020
  4. IBRUTINIB [Suspect]
     Active Substance: IBRUTINIB
     Indication: Chronic lymphocytic leukaemia
     Dosage: IT WAS STOPPED IN 2021 AND SHIFTED TO CAR-T CELL THERAPY.
     Route: 065
     Dates: start: 2016, end: 2021
  5. IBRUTINIB [Suspect]
     Active Substance: IBRUTINIB
     Dosage: RESTARTED 30 DAYS POST PET-CT SCAN POST CAR-T CELL
     Route: 065
     Dates: start: 2021
  6. CYCLOPHOSPHAMIDE [Suspect]
     Active Substance: CYCLOPHOSPHAMIDE
     Indication: Chronic lymphocytic leukaemia
     Dosage: RECEIVED 6 CYCLES IN THE FORM OF R-CHOP AND STOPPED IN 2021
     Route: 065
     Dates: end: 2021
  7. CYCLOPHOSPHAMIDE [Suspect]
     Active Substance: CYCLOPHOSPHAMIDE
     Dosage: IT WAS RESTARTED WITH CAR-T CELL THERAPY.
     Route: 065
  8. DOXORUBICIN HYDROCHLORIDE [Suspect]
     Active Substance: DOXORUBICIN HYDROCHLORIDE
     Indication: Chronic lymphocytic leukaemia
     Dosage: RECEIVED 6 CYCLES. IT WAS STOPPED IN 2021 AND SHIFTED TO CAR-T CELL THERAPY.
     Route: 065
     Dates: end: 2021
  9. VINCRISTINE SULFATE [Suspect]
     Active Substance: VINCRISTINE SULFATE
     Indication: Chronic lymphocytic leukaemia
     Dosage: RECEIVED 6 CYCLES. IT WAS STOPPED IN 2021 AND SHIFTED TO CAR-T CELL THERAPY.
     Route: 065
     Dates: end: 2021
  10. PREDNISONE [Suspect]
     Active Substance: PREDNISONE
     Indication: Chronic lymphocytic leukaemia
     Dosage: RECEIVED 6 CYCLES. IT WAS STOPPED IN 2021 AND SHIFTED TO CAR-T CELL THERAPY.
     Route: 065
     Dates: end: 2021

REACTIONS (1)
  - Disease progression [Recovered/Resolved]

NARRATIVE: CASE EVENT DATE: 20200101
